FAERS Safety Report 7405779-2 (Version None)
Quarter: 2011Q2

REPORT INFORMATION
  Report Type: 
  Country: None (occurrence: None)
  Receive Date: 20110411
  Receipt Date: 20110406
  Transmission Date: 20111010
  Serious: Yes (Other)
  Sender: FDA-Public Use
  Company Number: US-PFIZER INC-2011076659

PATIENT
  Sex: Female

DRUGS (1)
  1. CHANTIX [Suspect]
     Dosage: 0.5 MG, DAILY

REACTIONS (2)
  - LOSS OF CONSCIOUSNESS [None]
  - CARDIAC DISORDER [None]
